FAERS Safety Report 16373640 (Version 2)
Quarter: 2019Q2

REPORT INFORMATION
  Report Type: Spontaneous
  Country: US (occurrence: US)
  Receive Date: 20190530
  Receipt Date: 20190627
  Transmission Date: 20190711
  Serious: No
  Sender: FDA-Public Use
  Company Number: US-SA-2019SA145886

PATIENT
  Age: 32 Year
  Sex: Female
  Weight: 50.8 kg

DRUGS (16)
  1. LUMIZYME [Suspect]
     Active Substance: ALGLUCOSIDASE ALFA
     Dosage: 21.53 MG/KG, QOW
     Route: 065
     Dates: start: 20181228
  2. DOXYCYCLINE. [Concomitant]
     Active Substance: DOXYCYCLINE
     Dosage: 50 MG, BID
     Route: 048
     Dates: start: 20190521
  3. OXCARBAZEPINE. [Concomitant]
     Active Substance: OXCARBAZEPINE
     Dosage: 450 MG, BID
     Dates: start: 20140312
  4. ACETAMINOPHEN. [Concomitant]
     Active Substance: ACETAMINOPHEN
     Dosage: 650 MG, UNK
     Route: 065
     Dates: start: 20190620
  5. SALINE [SODIUM CHLORIDE] [Concomitant]
     Active Substance: SODIUM CHLORIDE
     Dosage: 0 9% DILUENT + PRIOR
     Route: 065
     Dates: start: 20190620
  6. LUMIZYME [Suspect]
     Active Substance: ALGLUCOSIDASE ALFA
     Indication: GLYCOGEN STORAGE DISORDER
     Dosage: 1100 MG, QOW
     Route: 041
     Dates: start: 20131025
  7. TRETINOIN. [Concomitant]
     Active Substance: TRETINOIN
     Dosage: .025%-1 APP DAILY
     Dates: start: 20190521
  8. KEPPRA [Concomitant]
     Active Substance: LEVETIRACETAM
     Dosage: 1500 MG, BID
     Route: 048
     Dates: start: 20140312
  9. SALINE [SODIUM CHLORIDE] [Concomitant]
     Active Substance: SODIUM CHLORIDE
     Dosage: 0 9% DILUENT + PRIOR
     Dates: start: 20181231
  10. EPINEPHRINE [EPINEPHRINE HYDROCHLORIDE] [Concomitant]
     Dosage: UNK UNK, PRN
     Dates: start: 20181231
  11. SODIUM CHLORIDE 0.9% [Concomitant]
     Active Substance: SODIUM CHLORIDE
     Dosage: FLUSH
     Dates: start: 20181231
  12. SODIUM CHLORIDE 0.9% [Concomitant]
     Active Substance: SODIUM CHLORIDE
     Dosage: FLUSH
     Route: 065
     Dates: start: 20190620
  13. LAMOTRIGINE. [Concomitant]
     Active Substance: LAMOTRIGINE
     Dosage: 100 MG 1 TAB BID
     Route: 048
     Dates: start: 20140312
  14. ACETAMINOPHEN. [Concomitant]
     Active Substance: ACETAMINOPHEN
     Dosage: 650 MG, PRN
     Dates: start: 20181231
  15. OXYGEN. [Concomitant]
     Active Substance: OXYGEN
     Dosage: 1 LITER HS
     Dates: start: 20190521
  16. EPINEPHRINE [EPINEPHRINE HYDROCHLORIDE] [Concomitant]
     Dosage: 0.3 MG, PRN
     Route: 065
     Dates: start: 20190620

REACTIONS (2)
  - Device issue [Unknown]
  - Fall [Unknown]
